FAERS Safety Report 5453705-8 (Version None)
Quarter: 2007Q3

REPORT INFORMATION
  Report Type: 
  Country: None (occurrence: None)
  Receive Date: 20070917
  Receipt Date: 20070905
  Transmission Date: 20080115
  Serious: Yes (Other)
  Sender: FDA-Public Use
  Company Number: BE-AVENTIS-200718310GDDC

PATIENT
  Age: 42 Year
  Sex: Female

DRUGS (1)
  1. FLAGYL [Suspect]
     Dosage: DOSE: 1 OVULE
     Route: 067
     Dates: start: 20070816, end: 20070824

REACTIONS (2)
  - HEADACHE [None]
  - MUSCULOSKELETAL STIFFNESS [None]
